FAERS Safety Report 11030633 (Version 1)
Quarter: 2015Q2

REPORT INFORMATION
  Report Type: Spontaneous
  Country: US (occurrence: None)
  Receive Date: 20150414
  Receipt Date: 20150414
  Transmission Date: 20150821
  Serious: Yes (Other)
  Sender: FDA-Public Use
  Company Number: None

PATIENT
  Age: 67 Year
  Sex: Female
  Weight: 81.19 kg

DRUGS (1)
  1. ESTRADIOL. [Suspect]
     Active Substance: ESTRADIOL
     Indication: ATROPHIC VULVOVAGINITIS
     Dosage: .0375 TWICE WEEK PATCH
     Dates: start: 20150112, end: 20150116

REACTIONS (2)
  - Nipple pain [None]
  - Vaginal haemorrhage [None]

NARRATIVE: CASE EVENT DATE: 20150112
